FAERS Safety Report 6781967-3 (Version None)
Quarter: 2010Q2

REPORT INFORMATION
  Report Type: 
  Country: None (occurrence: None)
  Receive Date: 20100621
  Receipt Date: 20100609
  Transmission Date: 20101027
  Serious: Yes (Hospitalization, Other)
  Sender: FDA-Public Use
  Company Number: US-PFIZER INC-2010072960

PATIENT
  Sex: Female

DRUGS (1)
  1. BEXTRA [Suspect]
     Indication: SPINAL OSTEOARTHRITIS
     Dosage: 10 MG, UNK

REACTIONS (1)
  - STEVENS-JOHNSON SYNDROME [None]
